FAERS Safety Report 5594156-5 (Version None)
Quarter: 2008Q1

REPORT INFORMATION
  Report Type: 
  Country: None (occurrence: None)
  Receive Date: 20080115
  Receipt Date: 20080108
  Transmission Date: 20080703
  Serious: Yes (Hospitalization)
  Sender: FDA-Public Use
  Company Number: 163-21880-08010480

PATIENT
  Age: 59 Year

DRUGS (1)
  1. REVLIMID [Suspect]
     Indication: MULTIPLE MYELOMA
     Dosage: 25 MG, 1 IN 1 D, ORAL
     Route: 048
     Dates: start: 20071105

REACTIONS (4)
  - PERSONALITY DISORDER [None]
  - RENAL FAILURE [None]
  - SWOLLEN TONGUE [None]
  - THROMBOTIC THROMBOCYTOPENIC PURPURA [None]
